FAERS Safety Report 8301172-9 (Version None)
Quarter: 2012Q2

REPORT INFORMATION
  Report Type: 
  Country: None (occurrence: None)
  Receive Date: 20120420
  Receipt Date: 20120417
  Transmission Date: 20120825
  Serious: Yes (Other)
  Sender: FDA-Public Use
  Company Number: PHFR2012GB002265

PATIENT
  Sex: Female

DRUGS (2)
  1. ESTRADERM [Suspect]
     Dosage: 2 X 25 MCG PATCH, EVERY 3 DAY
     Route: 062
  2. ESTRADERM [Suspect]
     Dosage: 50 MG, QW2
     Route: 062

REACTIONS (3)
  - SKIN REACTION [None]
  - ASTHMA [None]
  - VULVOVAGINAL DISCOMFORT [None]
